FAERS Safety Report 6079282-9 (Version None)
Quarter: 2009Q1

REPORT INFORMATION
  Report Type: 
  Country: None (occurrence: None)
  Receive Date: 20090216
  Receipt Date: 20090206
  Transmission Date: 20090719
  Serious: Yes (Hospitalization, Other)
  Sender: FDA-Public Use
  Company Number: TR-ABBOTT-09P-161-0499189-00

PATIENT
  Age: 37 Year
  Sex: Female
  Weight: 49 kg

DRUGS (6)
  1. HUMIRA [Suspect]
     Indication: ANKYLOSING SPONDYLITIS
     Route: 058
     Dates: start: 20080807, end: 20081203
  2. IMURAN [Concomitant]
     Indication: DRUG USE FOR UNKNOWN INDICATION
     Dosage: 3 X 1
  3. DELTACORTIL [Concomitant]
     Indication: DRUG USE FOR UNKNOWN INDICATION
     Dosage: 3 X 1
  4. COMBIVENT NEBULE [Concomitant]
     Indication: DYSPNOEA
     Dosage: 3 X 1
  5. NORVASK [Concomitant]
     Indication: HYPERTENSION
     Dosage: 1 X 1
     Route: 048
  6. NAC DIAGNOSTIC REAGENT [Concomitant]
     Indication: DRUG USE FOR UNKNOWN INDICATION
     Dosage: 1 X 1
     Route: 048

REACTIONS (4)
  - PERITONEAL TUBERCULOSIS [None]
  - PULMONARY TUBERCULOSIS [None]
  - TUBERCULOSIS [None]
  - VOLVULUS [None]
